FAERS Safety Report 8020997-0 (Version None)
Quarter: 2011Q4

REPORT INFORMATION
  Report Type: 
  Country: None (occurrence: None)
  Receive Date: 20111229
  Receipt Date: 20111229
  Transmission Date: 20120403
  Serious: Yes (Hospitalization)
  Sender: FDA-Public Use
  Company Number: None

PATIENT
  Age: 57 Year
  Sex: Female
  Weight: 91.2 kg

DRUGS (16)
  1. COMPAZINE [Concomitant]
  2. HYDROCHLOROTHIAZIDE [Concomitant]
  3. COUMADIN [Suspect]
     Indication: DEEP VEIN THROMBOSIS
     Dosage: 2.5MG MWF PO CHRONIC W RECENT INCREASE
     Route: 048
  4. ATIVAN [Concomitant]
  5. VIT B [Concomitant]
  6. SENOKOT [Concomitant]
  7. MAG CITRATE [Concomitant]
  8. COLACE [Concomitant]
  9. ZOFRAN [Concomitant]
  10. VITAMIN D [Concomitant]
  11. CALCIUM ACETATE [Concomitant]
  12. COUMADIN [Suspect]
     Indication: DEEP VEIN THROMBOSIS
     Dosage: 5MG S TUE TH SAT PO CHRONIC W RECENT INCREASE
     Route: 048
  13. MMW [Concomitant]
  14. EXFORGE [Concomitant]
  15. LOVAZA [Concomitant]
  16. OXYCODONE HCL [Concomitant]

REACTIONS (2)
  - GASTROINTESTINAL HAEMORRHAGE [None]
  - INTERNATIONAL NORMALISED RATIO INCREASED [None]
